FAERS Safety Report 8562132 (Version 2)
Quarter: 2012Q4

REPORT INFORMATION
  Report Type: Report from Study
  Country: DE (occurrence: DE)
  Receive Date: 20120515
  Receipt Date: 20121016
  Transmission Date: 20130627
  Serious: Yes (Death)
  Sender: FDA-Public Use
  Company Number: PHHY2012DE040745

PATIENT
  Age: 87 Year
  Sex: Female
  Weight: 70 kg

DRUGS (8)
  1. ICL670A [Suspect]
     Indication: MYELODYSPLASTIC SYNDROME
     Dosage: UNK UKN, UNK
     Dates: start: 20110216
  2. ICL670A [Suspect]
     Dosage: 1000 mg, UNK
  3. FRAXIPARINE [Concomitant]
     Dosage: 0.6 ml, UNK
     Dates: start: 20090606
  4. PANTOZOL [Concomitant]
     Dosage: 80 mg, daily
     Dates: start: 20090606
  5. FUROSEMIDE [Concomitant]
     Dosage: 80 mg, daily
     Dates: start: 20090606
  6. METOPROLOL [Concomitant]
     Dosage: 142.5 mg, daily
     Dates: start: 20090606
  7. ALLOPURINOL [Concomitant]
     Dosage: 150 mg, daily
     Dates: start: 20090606
  8. SAROTEN [Concomitant]
     Dosage: 25 mg, daily
     Dates: start: 20090606

REACTIONS (1)
  - Death [Fatal]
